FAERS Safety Report 15735838 (Version 1)
Quarter: 2018Q4

REPORT INFORMATION
  Report Type: Spontaneous
  Country: GB (occurrence: GB)
  Receive Date: 20181218
  Receipt Date: 20181218
  Transmission Date: 20190205
  Serious: Yes (Other)
  Sender: FDA-Public Use
  Company Number: PHHY2018GB181836

PATIENT
  Age: 65 Year
  Sex: Female

DRUGS (1)
  1. PAZOPANIB [Suspect]
     Active Substance: PAZOPANIB
     Indication: LEIOMYOSARCOMA
     Route: 065

REACTIONS (4)
  - Cerebral infarction [Unknown]
  - Abdominal mass [Unknown]
  - Metastases to liver [Unknown]
  - Monoparesis [Unknown]
